FAERS Safety Report 14820534 (Version 3)
Quarter: 2018Q4

REPORT INFORMATION
  Report Type: Spontaneous
  Country: GB (occurrence: GB)
  Receive Date: 20180427
  Receipt Date: 20181019
  Transmission Date: 20190204
  Serious: Yes (Hospitalization, Other)
  Sender: FDA-Public Use
  Company Number: GB-SEPTODONT-201804601

PATIENT
  Age: 51 Year
  Sex: Female

DRUGS (4)
  1. SCANDONEST PLAIN [Suspect]
     Active Substance: MEPIVACAINE HYDROCHLORIDE
     Indication: LOCAL ANAESTHESIA
     Route: 004
     Dates: start: 20180314
  2. STEROIDS [Concomitant]
     Active Substance: UNSPECIFIED INGREDIENT
     Indication: PRODUCT USED FOR UNKNOWN INDICATION
  3. SCANDONEST PLAIN [Suspect]
     Active Substance: MEPIVACAINE HYDROCHLORIDE
     Indication: LOCAL ANAESTHESIA
     Route: 004
     Dates: start: 20180312
  4. ODONTOPASTE [Suspect]
     Active Substance: CLINDAMYCIN HYDROCHLORIDE\TRIAMCINOLONE ACETONIDE
     Indication: PULPITIS DENTAL
     Dosage: DRESSING.
     Route: 004
     Dates: start: 20180312

REACTIONS (7)
  - Dysphonia [Unknown]
  - Hypoaesthesia [Unknown]
  - Eye movement disorder [Unknown]
  - Dysarthria [Unknown]
  - Swelling face [Unknown]
  - Anaphylactic reaction [Unknown]
  - Disorientation [Unknown]

NARRATIVE: CASE EVENT DATE: 20180312
